FAERS Safety Report 22044045 (Version 1)
Quarter: 2023Q1

REPORT INFORMATION
  Report Type: Spontaneous
  Country: US (occurrence: US)
  Receive Date: 20230228
  Receipt Date: 20230228
  Transmission Date: 20230418
  Serious: No
  Sender: FDA-Public Use
  Company Number: US-GLAXOSMITHKLINE-USCH2023007270

PATIENT
  Sex: Female

DRUGS (3)
  1. MINERALS\VITAMINS [Suspect]
     Active Substance: MINERALS\VITAMINS
     Indication: Migraine
     Dosage: UNK
  2. ADVIL DUAL ACTION WITH ACETAMINOPHEN [Suspect]
     Active Substance: ACETAMINOPHEN\IBUPROFEN
     Indication: Back pain
     Dosage: UNK
  3. ADVIL DUAL ACTION WITH ACETAMINOPHEN [Suspect]
     Active Substance: ACETAMINOPHEN\IBUPROFEN
     Indication: Migraine

REACTIONS (5)
  - Chromaturia [Unknown]
  - Constipation [Unknown]
  - Abdominal pain upper [Unknown]
  - Drug effective for unapproved indication [Unknown]
  - Product use in unapproved indication [Unknown]
